FAERS Safety Report 8558068-7 (Version None)
Quarter: 2012Q3

REPORT INFORMATION
  Report Type: 
  Country: None (occurrence: None)
  Receive Date: 20120801
  Receipt Date: 20120724
  Transmission Date: 20120928
  Serious: Yes (Other)
  Sender: FDA-Public Use
  Company Number: CA-ELI_LILLY_AND_COMPANY-CA201207007812

PATIENT
  Age: 72 Year
  Sex: Female

DRUGS (8)
  1. FORTEO [Suspect]
     Indication: OSTEOPOROSIS
     Dosage: 20 UG, QD
     Route: 058
     Dates: start: 20101123
  2. PREDNISONE [Concomitant]
  3. FOLIC ACID [Concomitant]
  4. CALCIUM [Concomitant]
  5. ORENCIA [Concomitant]
  6. METHOTREXATE [Concomitant]
  7. HYDROCHLOROTHIAZIDE [Concomitant]
  8. CELEBREX [Concomitant]

REACTIONS (2)
  - RHEUMATOID ARTHRITIS [None]
  - JOINT DESTRUCTION [None]
